FAERS Safety Report 21755944 (Version 2)
Quarter: 2023Q1

REPORT INFORMATION
  Report Type: Spontaneous
  Country: US (occurrence: US)
  Receive Date: 20221220
  Receipt Date: 20230127
  Transmission Date: 20230417
  Serious: Yes (Hospitalization, Other)
  Sender: FDA-Public Use
  Company Number: US-INTRA-CELLULAR THERAPIES, INC.-2022ICT01739

PATIENT
  Age: 68 Year
  Sex: Female
  Weight: 50.794 kg

DRUGS (18)
  1. CAPLYTA [Suspect]
     Active Substance: LUMATEPERONE
     Indication: Bipolar disorder
     Dosage: 42 MG, 1X/DAY
     Route: 048
     Dates: start: 20221206, end: 20221206
  2. CYMBALTA [Concomitant]
     Active Substance: DULOXETINE HYDROCHLORIDE
     Dosage: 60 MG, 1X/DAY IN THE AM
     Route: 048
  3. FOLTANX [Concomitant]
     Dosage: 0.5 DOSAGE FORM, 1X/DAY IN THE AM
     Route: 048
  4. DIETARY SUPPLEMENT\HERBALS\MILK THISTLE [Concomitant]
     Active Substance: DIETARY SUPPLEMENT\HERBALS\MILK THISTLE
     Dosage: 450 MG, 1X/DAY IN THE AM
  5. GABAPENTIN [Concomitant]
     Active Substance: GABAPENTIN
     Dosage: 600 MG, 2X/DAY (AM AND PM)
     Dates: end: 20221206
  6. GABAPENTIN [Concomitant]
     Active Substance: GABAPENTIN
     Dosage: 600 MG, 2X/DAY (AM AND PM)
     Dates: start: 20221207
  7. SPIRULINA SPP. [Concomitant]
     Dosage: 3000 MG, 1X/DAY IN THE AM
     Route: 048
     Dates: end: 20221206
  8. SPIRULINA SPP. [Concomitant]
     Dosage: 3000 MG, 1X/DAY IN THE AM
     Route: 048
     Dates: start: 20221207
  9. UNSPECIFIED PROBIOTIC [Concomitant]
     Dosage: 1 CAPSULE, 1X/DAY IN THE AM
  10. PRAVASTATIN [Concomitant]
     Active Substance: PRAVASTATIN
     Dosage: 20 MG, 1X/DAY IN THE PM
     Route: 048
  11. FOSINOPRIL [Concomitant]
     Active Substance: FOSINOPRIL
     Dosage: 40 MG, 1X/DAY IN THE PM
     Route: 048
  12. ASPIRIN [Concomitant]
     Active Substance: ASPIRIN
     Dosage: 81 MG, 1X/DAY IN THE PM
     Route: 048
  13. PROGESTERONE [Concomitant]
     Active Substance: PROGESTERONE
     Dosage: 100 MG, 1X/DAY IN THE PM AT BEDTIME
     Route: 048
  14. TRESIBA [Concomitant]
     Active Substance: INSULIN DEGLUDEC
     Dosage: UNK, 1X/DAY IN THE EVENING JUST BEFORE BED TIME
     Dates: end: 20221206
  15. TRESIBA [Concomitant]
     Active Substance: INSULIN DEGLUDEC
     Dosage: UNK, 1X/DAY IN THE EVENING JUST BEFORE BED TIME
     Dates: start: 20221207
  16. ESTRADIOL TRANSDERMAL SYSTEM [Concomitant]
     Active Substance: ESTRADIOL
     Dosage: 0.00313 MG/HR, 1X/DAY IN THE PM
  17. ESTRADIOL TRANSDERMAL SYSTEM [Concomitant]
     Active Substance: ESTRADIOL
     Dosage: 0.00313 MG/HR 2X/WEEK
  18. NOVOLOG [Concomitant]
     Active Substance: INSULIN ASPART
     Dosage: UNK BEFORE EATING/ EACH MEAL

REACTIONS (32)
  - Syncope [Recovered/Resolved]
  - Hypotension [Recovered/Resolved]
  - Supraventricular extrasystoles [Unknown]
  - Circulatory collapse [Unknown]
  - Disturbance in attention [Unknown]
  - Apnoea [Recovered/Resolved]
  - Essential hypertension [Unknown]
  - Atrial fibrillation [Unknown]
  - Pulse absent [Recovered/Resolved]
  - Asthma [Unknown]
  - Hyperhidrosis [Unknown]
  - Confusional state [Unknown]
  - Weight decreased [Unknown]
  - Blood glucose increased [Unknown]
  - Mean cell haemoglobin concentration decreased [Unknown]
  - Mean platelet volume increased [Unknown]
  - Platelet count decreased [Unknown]
  - Red blood cell count decreased [Unknown]
  - Blood chloride increased [Unknown]
  - Glomerular filtration rate decreased [Recovered/Resolved]
  - Blood phosphorus decreased [Unknown]
  - Protein total decreased [Unknown]
  - Blood calcium decreased [Unknown]
  - Aspartate aminotransferase decreased [Unknown]
  - Alanine aminotransferase decreased [Unknown]
  - Blood alkaline phosphatase decreased [Unknown]
  - Blood albumin decreased [Unknown]
  - Haematocrit decreased [Unknown]
  - Haemoglobin decreased [Unknown]
  - Extrasystoles [Unknown]
  - Anxiety [Unknown]
  - Agitation [Unknown]

NARRATIVE: CASE EVENT DATE: 20221201
